FAERS Safety Report 16660741 (Version 3)
Quarter: 2019Q3

REPORT INFORMATION
  Report Type: Spontaneous
  Country: US (occurrence: US)
  Receive Date: 20190802
  Receipt Date: 20190815
  Transmission Date: 20191004
  Serious: Yes (Hospitalization, Other)
  Sender: FDA-Public Use
  Company Number: US-PFIZER INC-2019328144

PATIENT
  Age: 42 Year
  Sex: Female

DRUGS (4)
  1. EPINEPHRINE. [Suspect]
     Active Substance: EPINEPHRINE
     Indication: NERVE BLOCK
  2. EPINEPHRINE. [Suspect]
     Active Substance: EPINEPHRINE
     Indication: LOCAL ANAESTHESIA
     Dosage: UNK (INJECTION) (NOVOCAINADRENAIIN SOIUTION OF AN UNSPECIFIED QUANTITY)
     Dates: start: 19430115
  3. NOVOCAINE [Suspect]
     Active Substance: PROCAINE
     Indication: LOCAL ANAESTHESIA
     Dosage: UNK, (NOVOCAIN-ADRENAIIN SOIUTION OF AN UNSPECIFIED QUANTITY)
     Dates: start: 19430115
  4. NOVOCAINE [Suspect]
     Active Substance: PROCAINE
     Indication: NERVE BLOCK

REACTIONS (2)
  - Extremity necrosis [Recovering/Resolving]
  - Gangrene [Recovering/Resolving]

NARRATIVE: CASE EVENT DATE: 19430115
